FAERS Safety Report 7909041-0 (Version None)
Quarter: 2011Q4

REPORT INFORMATION
  Report Type: 
  Country: None (occurrence: None)
  Receive Date: 20111111
  Receipt Date: 20111110
  Transmission Date: 20120403
  Serious: Yes (Hospitalization, Other)
  Sender: FDA-Public Use
  Company Number: CA-ABBOTT-10P-028-0687941-00

PATIENT
  Sex: Male
  Weight: 64.468 kg

DRUGS (8)
  1. DICLOFENAC SODIUM [Concomitant]
     Indication: PRODUCT USED FOR UNKNOWN INDICATION
  2. PREDNISONE TAB [Concomitant]
     Indication: RHEUMATOID ARTHRITIS
     Dosage: 30MG DAILY DOWN TO 0MG OVER SEVERAL WEEK
     Route: 048
  3. MAVIK [Suspect]
     Indication: STEROID THERAPY
  4. MAVIK [Suspect]
     Indication: HYPERTENSION
     Dosage: 1 MG /DAY  DIE
     Route: 048
     Dates: start: 20100630, end: 20100806
  5. METHOTREXATE [Concomitant]
     Indication: PRODUCT USED FOR UNKNOWN INDICATION
     Dosage: TAKES 1 1/2 TABLETS
  6. STEROIDS [Concomitant]
     Indication: PRODUCT USED FOR UNKNOWN INDICATION
  7. ATIVAN [Concomitant]
     Indication: PRODUCT USED FOR UNKNOWN INDICATION
  8. HYDROCHLORIZIDE [Concomitant]
     Indication: PRODUCT USED FOR UNKNOWN INDICATION

REACTIONS (2)
  - PERICARDIAL DRAINAGE [None]
  - HYPOTENSION [None]
